FAERS Safety Report 18659614 (Version 1)
Quarter: 2020Q4

REPORT INFORMATION
  Report Type: Spontaneous
  Country: US (occurrence: US)
  Receive Date: 20201223
  Receipt Date: 20201223
  Transmission Date: 20210114
  Serious: Yes (Hospitalization, Other)
  Sender: FDA-Public Use
  Company Number: US-GILEAD-2020-0510031

PATIENT
  Age: 64 Year
  Sex: Female

DRUGS (5)
  1. ROCEPHIN [Concomitant]
     Active Substance: CEFTRIAXONE SODIUM
  2. REMDESIVIR. [Suspect]
     Active Substance: REMDESIVIR
     Indication: COVID-19
     Dosage: UNK
     Route: 042
     Dates: start: 202009, end: 202009
  3. ZOFRAN [Concomitant]
     Active Substance: ONDANSETRON HYDROCHLORIDE
  4. PREDNISONE. [Concomitant]
     Active Substance: PREDNISONE
  5. OXYGEN. [Concomitant]
     Active Substance: OXYGEN

REACTIONS (10)
  - Dyspnoea [Unknown]
  - Illness [Unknown]
  - Blood glucose increased [Unknown]
  - Arthralgia [Unknown]
  - Thrombosis [Recovered/Resolved]
  - Muscular weakness [Not Recovered/Not Resolved]
  - Peripheral swelling [Unknown]
  - Asthenia [Unknown]
  - Pulmonary thrombosis [Recovered/Resolved]
  - Rotator cuff syndrome [Unknown]
